FAERS Safety Report 26043960 (Version 1)
Quarter: 2025Q4

REPORT INFORMATION
  Report Type: Spontaneous
  Country: GB (occurrence: GB)
  Receive Date: 20251114
  Receipt Date: 20251114
  Transmission Date: 20260117
  Serious: Yes (Other)
  Sender: JOHNSON AND JOHNSON
  Company Number: GB-MHRA-TPP8972404C6863897YC1762797423253

PATIENT
  Age: 47 Year
  Sex: Female
  Weight: 78 kg

DRUGS (9)
  1. TOPIRAMATE [Suspect]
     Active Substance: TOPIRAMATE
     Indication: Ill-defined disorder
     Dosage: ONE A DAY
     Route: 048
     Dates: start: 20251103, end: 20251110
  2. ASPIRIN [Concomitant]
     Active Substance: ASPIRIN
     Indication: Ill-defined disorder
     Dosage: ONE TABLET
     Dates: start: 20251015, end: 20251016
  3. ATORVASTATIN [Concomitant]
     Active Substance: ATORVASTATIN
     Indication: Ill-defined disorder
     Dosage: TAKE ONE DAILY
     Dates: start: 20250707
  4. BECLOMETHASONE\FORMOTEROL [Concomitant]
     Active Substance: BECLOMETHASONE\FORMOTEROL
     Indication: Ill-defined disorder
     Dosage: MAINTENANCE,1 PUFF TWICE A DAY. FOR IMMEDIATE R...
     Dates: start: 20250707
  5. NITROGLYCERIN [Concomitant]
     Active Substance: NITROGLYCERIN
     Indication: Ill-defined disorder
     Dosage: SPRAY ONE DOSE UNDER THE TONGUE WHEN REQUIRED F...
     Dates: start: 20250707
  6. INVITA [Concomitant]
     Indication: Ill-defined disorder
     Dosage: TAKE 1ML ONCE PER MONTH MAINTENANCE DOSE TO PRE...
     Dates: start: 20250707
  7. LOSARTAN [Concomitant]
     Active Substance: LOSARTAN
     Indication: Ill-defined disorder
     Dosage: TAKE ONE DAILY
     Dates: start: 20250707
  8. MIRTAZAPINE [Concomitant]
     Active Substance: MIRTAZAPINE
     Indication: Ill-defined disorder
     Dosage: TAKE ONE TABLET DAILY
     Dates: start: 20250728, end: 20251001
  9. AMITRIPTYLINE HYDROCHLORIDE [Concomitant]
     Active Substance: AMITRIPTYLINE HYDROCHLORIDE
     Indication: Ill-defined disorder
     Dosage: ONE AT NIGHT. CAN INCREASE TO TWO AT NIGHT AFTE...
     Dates: start: 20251001, end: 20251103

REACTIONS (6)
  - Visual impairment [Unknown]
  - Speech disorder [Unknown]
  - Weight fluctuation [Unknown]
  - Nausea [Unknown]
  - Constipation [Recovering/Resolving]
  - Urine abnormality [Unknown]
